FAERS Safety Report 5357345-0 (Version None)
Quarter: 2007Q2

REPORT INFORMATION
  Report Type: 
  Country: None (occurrence: None)
  Receive Date: 20070614
  Receipt Date: 20070612
  Transmission Date: 20071010
  Serious: Yes (Hospitalization)
  Sender: FDA-Public Use
  Company Number: A0655262A

PATIENT
  Age: 66 Year
  Sex: Female

DRUGS (9)
  1. AVANDIA [Suspect]
     Dosage: 4MG TWICE PER DAY
     Route: 048
     Dates: start: 20040101, end: 20070601
  2. METFORMIN HCL [Concomitant]
  3. DIOVAN [Concomitant]
  4. WARFARIN SODIUM [Concomitant]
  5. LISINOPRIL [Concomitant]
  6. CRESTOR [Concomitant]
  7. SOTALOL HYDROCHLORIDE [Concomitant]
  8. ZYRTEC [Concomitant]
  9. LANTUS [Concomitant]

REACTIONS (9)
  - BRADYCARDIA [None]
  - CARDIAC PACEMAKER INSERTION [None]
  - DIZZINESS [None]
  - DYSPNOEA [None]
  - HEART RATE IRREGULAR [None]
  - MENIERE'S DISEASE [None]
  - MUSCLE TWITCHING [None]
  - SYNCOPE [None]
  - VERTIGO [None]
